FAERS Safety Report 5418693-9 (Version None)
Quarter: 2007Q3

REPORT INFORMATION
  Report Type: 
  Country: None (occurrence: None)
  Receive Date: 20070817
  Receipt Date: 20070806
  Transmission Date: 20080115
  Serious: Yes (Hospitalization)
  Sender: FDA-Public Use
  Company Number: FR-PFIZER INC-2006151627

PATIENT
  Sex: Male

DRUGS (2)
  1. SU-011,248 [Suspect]
     Indication: RENAL CELL CARCINOMA STAGE UNSPECIFIED
     Route: 048
     Dates: start: 20060311, end: 20061225
  2. DI-ANTALVIC [Concomitant]
     Route: 048
     Dates: start: 20051118, end: 20070108

REACTIONS (1)
  - PLEURAL EFFUSION [None]
